FAERS Safety Report 7163911-2 (Version None)
Quarter: 2010Q4

REPORT INFORMATION
  Report Type: 
  Country: None (occurrence: None)
  Receive Date: 20101215
  Receipt Date: 20101209
  Transmission Date: 20110411
  Serious: Yes (Life-Threatening, Hospitalization)
  Sender: FDA-Public Use
  Company Number: GB-PFIZER INC-2010168793

PATIENT
  Age: 40 Year
  Sex: Male
  Weight: 70 kg

DRUGS (3)
  1. ANADIN EXTRA [Suspect]
     Dosage: 2 DF, 2X/DAY
     Route: 048
     Dates: start: 20100801
  2. IBUPROFEN [Suspect]
     Indication: ABDOMINAL PAIN UPPER
     Dosage: 400 MG, UNK
     Route: 048
     Dates: start: 20100901
  3. SALBUTAMOL [Concomitant]
     Route: 055

REACTIONS (1)
  - GASTRIC ULCER PERFORATION [None]
